FAERS Safety Report 9336980 (Version 1)
Quarter: 2013Q2

REPORT INFORMATION
  Report Type: Spontaneous
  Country: US (occurrence: US)
  Receive Date: 20130607
  Receipt Date: 20130607
  Transmission Date: 20140414
  Serious: Yes (Hospitalization, Other)
  Sender: FDA-Public Use
  Company Number: US-PFIZER INC-2013172491

PATIENT
  Age: 55 Year
  Sex: Female
  Weight: 77.1 kg

DRUGS (9)
  1. EFFEXOR XR [Suspect]
     Indication: DEPRESSION
     Dosage: 37.5 MG, 2X/DAY
     Route: 048
     Dates: start: 2003
  2. IBUPROFEN [Concomitant]
     Dosage: 800 MG, 3X/DAY
  3. ANTIVERT [Concomitant]
     Indication: DIZZINESS
     Dosage: 25 MG, UNK
  4. AMITRIPTYLINE [Concomitant]
     Dosage: 10 MG, UNK
  5. XANAX [Concomitant]
     Dosage: 0.5 MG, 3X/DAY
  6. COMPAZINE [Concomitant]
     Indication: NAUSEA
     Dosage: 10 MG, UNK
     Route: 048
  7. COMPAZINE [Concomitant]
     Indication: VOMITING
  8. FLEXERIL [Concomitant]
     Dosage: 10 MG, 1X/DAY
  9. TRAMADOL [Concomitant]
     Dosage: 50 MG, 3X/DAY

REACTIONS (5)
  - Blood pressure increased [Unknown]
  - Vomiting [Unknown]
  - Dry mouth [Unknown]
  - Pain [Unknown]
  - Pruritus generalised [Unknown]
